FAERS Safety Report 6308926-9 (Version None)
Quarter: 2009Q3

REPORT INFORMATION
  Report Type: 
  Country: None (occurrence: None)
  Receive Date: 20090813
  Receipt Date: 20090518
  Transmission Date: 20100115
  Serious: No
  Sender: FDA-Public Use
  Company Number: US-ALLERGAN-0906895US

PATIENT
  Age: 83 Year
  Sex: Female

DRUGS (2)
  1. COMBIGAN [Suspect]
     Indication: GLAUCOMA
     Dosage: UNK, UNKNOWN
     Route: 047
     Dates: start: 20090515, end: 20090501
  2. XALATAN [Concomitant]
     Indication: GLAUCOMA
     Dosage: UNK, QHS
     Route: 047

REACTIONS (3)
  - EYELID OEDEMA [None]
  - FATIGUE [None]
  - VISION BLURRED [None]
